FAERS Safety Report 11089524 (Version 1)
Quarter: 2015Q2

REPORT INFORMATION
  Report Type: Spontaneous
  Country: BE (occurrence: BE)
  Receive Date: 20150505
  Receipt Date: 20150505
  Transmission Date: 20150821
  Serious: Yes (Death, Hospitalization)
  Sender: FDA-Public Use
  Company Number: BE-CIPLA LTD.-2015BE03456

PATIENT

DRUGS (3)
  1. CARBOPLATIN. [Suspect]
     Active Substance: CARBOPLATIN
     Indication: NEUROENDOCRINE CARCINOMA
     Dosage: AREA UNDER THE CURVE = 5 MG/ML/MIN ON DAY 1, REPEATED EVERY 3 WEEKS
     Route: 042
  2. ETOPOSIDE INJECTION 20 MG/ ML [Suspect]
     Active Substance: ETOPOSIDE
     Indication: NEUROENDOCRINE CARCINOMA
     Dosage: 100 MG/M2, ON DAYS 1, 2 AND 3, REPEATED EVERY 3 WEEKS
     Route: 042
  3. LANREOTIDE AUTOGEL [Suspect]
     Active Substance: LANREOTIDE
     Indication: NEUROENDOCRINE CARCINOMA
     Dosage: 120 MG/4 WEEKS
     Route: 058

REACTIONS (10)
  - Death [Fatal]
  - Nausea [Unknown]
  - Abdominal pain upper [Unknown]
  - Metastases to bone [Unknown]
  - Diarrhoea [Unknown]
  - Metastases to liver [Unknown]
  - Hepatomegaly [Unknown]
  - Carcinoid heart disease [Unknown]
  - Vomiting [Unknown]
  - Decreased appetite [Unknown]
